FAERS Safety Report 6327649-3 (Version None)
Quarter: 2009Q3

REPORT INFORMATION
  Report Type: 
  Country: None (occurrence: None)
  Receive Date: 20090825
  Receipt Date: 20090819
  Transmission Date: 20100115
  Serious: Yes (Death)
  Sender: FDA-Public Use
  Company Number: US-EISAI INC.-E2080-00197-SPO-US

PATIENT
  Sex: Female
  Weight: 81.8 kg

DRUGS (22)
  1. BANZEL [Suspect]
     Route: 048
     Dates: start: 20090618, end: 20090601
  2. BANZEL [Suspect]
     Route: 048
     Dates: start: 20090601, end: 20090701
  3. BANZEL [Suspect]
     Dates: start: 20090701, end: 20090701
  4. BANZEL [Suspect]
     Dates: start: 20090701
  5. ZONEGRAN [Concomitant]
     Route: 048
  6. LAMICTAL [Concomitant]
     Route: 048
     Dates: start: 20090312
  7. KEPPRA [Concomitant]
     Route: 048
     Dates: start: 20081211
  8. DIASTAT ACUDIAL [Concomitant]
     Route: 054
     Dates: start: 20090706
  9. ACETAMINOPHEN [Concomitant]
     Route: 048
     Dates: start: 20090626
  10. OXYCODONE [Concomitant]
     Route: 048
     Dates: start: 20090626
  11. MIRALAX [Concomitant]
     Route: 048
  12. DULCOLAX [Concomitant]
     Indication: CONSTIPATION
     Route: 054
  13. VALTREX [Concomitant]
     Route: 048
  14. LOTRIMIN [Concomitant]
     Route: 061
  15. COLACE [Concomitant]
     Route: 048
  16. GEODON [Concomitant]
     Route: 048
  17. VALIUM [Concomitant]
     Route: 048
     Dates: start: 20081211
  18. ASPIRIN [Concomitant]
     Route: 048
     Dates: start: 20081211
  19. VIACTIV [Concomitant]
     Route: 048
     Dates: start: 20081211
  20. CELEXA [Concomitant]
     Route: 048
     Dates: start: 20081211
  21. ONE-A-DAY WOMEN'S FORMULA [Concomitant]
     Route: 048
     Dates: start: 20081211
  22. METAMUCIL [Concomitant]
     Route: 048
     Dates: start: 20081211

REACTIONS (1)
  - DEATH [None]
